FAERS Safety Report 7714673-9 (Version None)
Quarter: 2011Q3

REPORT INFORMATION
  Report Type: 
  Country: None (occurrence: None)
  Receive Date: 20110822
  Receipt Date: 20110804
  Transmission Date: 20111222
  Serious: Yes (Death, Other)
  Sender: FDA-Public Use
  Company Number: 2011MA011479

PATIENT
  Age: 40 Year

DRUGS (5)
  1. METHAMPHETAMINE HYDROCHLORIDE [Suspect]
  2. IRBESARTAN [Suspect]
  3. METHADONE HCL [Suspect]
     Dosage: 1.6 MG/L
  4. OXAZEPAM [Suspect]
  5. ACETAMINOPHEN [Suspect]

REACTIONS (11)
  - BRONCHOPNEUMONIA [None]
  - OVERDOSE [None]
  - STUPOR [None]
  - PULMONARY OEDEMA [None]
  - PURULENCE [None]
  - BRONCHITIS [None]
  - POISONING [None]
  - PULMONARY CONGESTION [None]
  - SOMNOLENCE [None]
  - CARDIAC FAILURE CONGESTIVE [None]
  - SNORING [None]
